FAERS Safety Report 20798293 (Version 1)
Quarter: 2022Q2

REPORT INFORMATION
  Report Type: Spontaneous
  Country: US (occurrence: US)
  Receive Date: 20220507
  Receipt Date: 20220507
  Transmission Date: 20220721
  Serious: No
  Sender: FDA-Public Use
  Company Number: US-SANOFI-01087779

PATIENT
  Sex: Female

DRUGS (2)
  1. DUPIXENT [Suspect]
     Active Substance: DUPILUMAB
     Indication: Dermatitis atopic
     Dosage: 300 MG, QOW
     Route: 058
     Dates: start: 20211110
  2. AMITRIPTYLINE [Concomitant]
     Active Substance: AMITRIPTYLINE
     Indication: Sleep disorder

REACTIONS (9)
  - Eye irritation [Unknown]
  - Photosensitivity reaction [Unknown]
  - Vision blurred [Unknown]
  - Impaired work ability [Unknown]
  - Impaired driving ability [Unknown]
  - Strabismus [Unknown]
  - Skin wrinkling [Unknown]
  - Dermatitis contact [Not Recovered/Not Resolved]
  - Dry eye [Unknown]
